FAERS Safety Report 15167410 (Version 2)
Quarter: 2019Q1

REPORT INFORMATION
  Report Type: Spontaneous
  Country: FR (occurrence: FR)
  Receive Date: 20180719
  Receipt Date: 20190227
  Transmission Date: 20190417
  Serious: Yes (Death)
  Sender: FDA-Public Use
  Company Number: FR-PFIZER INC-2018288957

PATIENT
  Age: 86 Year
  Sex: Female
  Weight: 73 kg

DRUGS (1)
  1. METHOTREXATE SODIUM. [Suspect]
     Active Substance: METHOTREXATE SODIUM
     Dosage: 5 DF, WEEKLY
     Route: 048
     Dates: start: 20160808, end: 20160815

REACTIONS (2)
  - Aplasia [Fatal]
  - Sepsis [Fatal]

NARRATIVE: CASE EVENT DATE: 20160808
